FAERS Safety Report 8895816 (Version 2)
Quarter: 2012Q4

REPORT INFORMATION
  Report Type: 
  Country: US (occurrence: US)
  Receive Date: 20121108
  Receipt Date: 20121128
  Transmission Date: 20130627
  Serious: Yes (Death)
  Sender: FDA-Public Use
  Company Number: US-CELGENEUS-163-21880-12110547

PATIENT
  Sex: Female

DRUGS (5)
  1. REVLIMID [Suspect]
     Indication: MULTIPLE MYELOMA
     Dosage: 25 Milligram
     Route: 048
     Dates: start: 200905, end: 2010
  2. REVLIMID [Suspect]
     Dosage: 10 Milligram
     Route: 048
     Dates: start: 201007, end: 2011
  3. REVLIMID [Suspect]
     Dosage: 25 Milligram
     Route: 048
     Dates: start: 201111, end: 201202
  4. REVLIMID [Suspect]
     Dosage: 15 Milligram
     Route: 048
     Dates: start: 201202, end: 201205
  5. REVLIMID [Suspect]
     Dosage: 25 Milligram
     Route: 048
     Dates: start: 201205, end: 2012

REACTIONS (1)
  - Plasma cell myeloma [Fatal]
